FAERS Safety Report 7553372-3 (Version None)
Quarter: 2011Q2

REPORT INFORMATION
  Report Type: 
  Country: None (occurrence: None)
  Receive Date: 20110617
  Receipt Date: 20110322
  Transmission Date: 20111010
  Serious: Yes (Other)
  Sender: FDA-Public Use
  Company Number: A0919445A

PATIENT
  Age: 85 Year
  Sex: Female

DRUGS (8)
  1. BONIVA [Concomitant]
  2. WARFARIN SODIUM [Concomitant]
  3. MULTI-VITAMIN [Concomitant]
  4. NORVASC [Concomitant]
  5. LISINOPRIL [Concomitant]
  6. LASIX [Concomitant]
  7. IMMUNE GLOBULIN INTRAVENOUS (HUMAN) [Concomitant]
     Indication: THROMBOCYTOPENIA
  8. PROMACTA [Suspect]
     Indication: IDIOPATHIC THROMBOCYTOPENIC PURPURA
     Dosage: 25MG PER DAY
     Route: 048
     Dates: start: 20090601, end: 20110316

REACTIONS (2)
  - DEEP VEIN THROMBOSIS [None]
  - PLATELET COUNT INCREASED [None]
